FAERS Safety Report 11705538 (Version 3)
Quarter: 2015Q4

REPORT INFORMATION
  Report Type: Spontaneous
  Country: US (occurrence: None)
  Receive Date: 20151106
  Receipt Date: 20151125
  Transmission Date: 20160304
  Serious: Yes (Hospitalization, Other)
  Sender: FDA-Public Use
  Company Number: US-MDT-ADR-2015-02098

PATIENT
  Age: 20 Year
  Sex: Male

DRUGS (1)
  1. LIORESAL [Suspect]
     Active Substance: BACLOFEN
     Indication: MUSCLE SPASTICITY
     Dosage: 284.2 MCG/DAY

REACTIONS (12)
  - Malaise [None]
  - Incorrect drug administration rate [None]
  - Hypertension [None]
  - Pain in extremity [None]
  - Pruritus genital [None]
  - Muscle spasticity [None]
  - Device power source issue [None]
  - Headache [None]
  - Nausea [None]
  - Decreased appetite [None]
  - Constipation [None]
  - Dizziness [None]
